FAERS Safety Report 22311022 (Version 10)
Quarter: 2025Q1

REPORT INFORMATION
  Report Type: Spontaneous
  Country: US (occurrence: US)
  Receive Date: 20230511
  Receipt Date: 20250213
  Transmission Date: 20250409
  Serious: Yes (Other)
  Sender: PFIZER
  Company Number: US-PFIZER INC-PV202300080934

PATIENT
  Age: 63 Year
  Sex: Female

DRUGS (3)
  1. IBRANCE [Suspect]
     Active Substance: PALBOCICLIB
  2. IBRANCE [Suspect]
     Active Substance: PALBOCICLIB
  3. EXEMESTANE [Suspect]
     Active Substance: EXEMESTANE

REACTIONS (15)
  - Neuropathy peripheral [Unknown]
  - White blood cell count decreased [Recovered/Resolved]
  - Nausea [Unknown]
  - Oropharyngeal pain [Unknown]
  - Fatigue [Not Recovered/Not Resolved]
  - Stomatitis [Unknown]
  - Oral herpes [Unknown]
  - Tongue discomfort [Unknown]
  - Insomnia [Recovering/Resolving]
  - Laboratory test abnormal [Unknown]
  - Middle insomnia [Recovering/Resolving]
  - Hypoaesthesia [Unknown]
  - Bone pain [Unknown]
  - Alopecia [Unknown]
  - Pain [Unknown]
